FAERS Safety Report 4713565-7 (Version None)
Quarter: 2005Q3

REPORT INFORMATION
  Report Type: 
  Country: None (occurrence: None)
  Receive Date: 20050712
  Receipt Date: 20050627
  Transmission Date: 20060218
  Serious: Yes (Death)
  Sender: FDA-Public Use
  Company Number: 2005S1005539

PATIENT
  Age: 45 Year
  Sex: Male

DRUGS (15)
  1. CLOZAPINE [Suspect]
     Indication: SCHIZOPHRENIA
     Dosage: 25 MG;HS;PO
     Route: 048
     Dates: start: 20020515, end: 20050601
  2. CLOZAPINE [Suspect]
     Indication: SCHIZOPHRENIA, PARANOID TYPE
     Dosage: 25 MG;HS;PO
     Route: 048
     Dates: start: 20020515, end: 20050601
  3. CLOZAPINE [Suspect]
     Dosage: 200 MG;HS;PO
     Route: 048
     Dates: start: 20030515, end: 20050601
  4. ESCITALOPRAM OXALATE [Concomitant]
  5. CLONAZEPAM [Concomitant]
  6. TRIHEXYPHENIDYL HCL [Concomitant]
  7. HYDROCHLORIDE [Concomitant]
  8. CHLORPROMAZINE HCL [Concomitant]
  9. HYDROCHLORIDE [Concomitant]
  10. SMVASTATIN [Concomitant]
  11. LISINOPRIL [Concomitant]
  12. METOPROLOL SUCCINATE [Concomitant]
  13. ASPIRIN [Concomitant]
  14. PANTOPRAZOLE [Concomitant]
  15. GLYCERYL TRINITRATE [Concomitant]

REACTIONS (1)
  - MYOCARDIAL INFARCTION [None]
